FAERS Safety Report 4898860-3 (Version None)
Quarter: 2006Q1

REPORT INFORMATION
  Report Type: 
  Country: None (occurrence: None)
  Receive Date: 20060104
  Receipt Date: 20050909
  Transmission Date: 20060701
  Serious: Yes (Disabling)
  Sender: FDA-Public Use
  Company Number: A03200502835

PATIENT
  Age: 35 Year
  Sex: Female
  Weight: 48.5349 kg

DRUGS (6)
  1. ELOXATIN - CARBOPLATIN - SOLUTION [Suspect]
     Indication: COLORECTAL CANCER
     Dosage: INTRAVENOUS NOS
     Route: 042
     Dates: start: 20050727, end: 20050727
  2. FLUOROURACIL [Concomitant]
  3. LEUCOVORIN [Concomitant]
  4. PALONOSETRON HYDROCHLORIDE [Concomitant]
  5. MAGNESIUM SULFATE [Concomitant]
  6. CALCIUM GLUCONATE [Concomitant]

REACTIONS (2)
  - DISABILITY [None]
  - NEUROPATHY [None]
